FAERS Safety Report 24003625 (Version 1)
Quarter: 2024Q2

REPORT INFORMATION
  Report Type: Spontaneous
  Country: GB (occurrence: GB)
  Receive Date: 20240624
  Receipt Date: 20240624
  Transmission Date: 20240715
  Serious: Yes (Other)
  Sender: FDA-Public Use
  Company Number: GB-MHRA-TPP429548C4611301YC1718283932615

PATIENT
  Age: 56 Year
  Sex: Male
  Weight: 90 kg

DRUGS (5)
  1. ALLOPURINOL [Suspect]
     Active Substance: ALLOPURINOL
     Route: 065
     Dates: start: 20231108, end: 20240328
  2. AMLODIPINE [Concomitant]
     Active Substance: AMLODIPINE BESYLATE
     Dosage: EACH MORNING
     Route: 065
     Dates: start: 20240328
  3. FAMOTIDINE [Concomitant]
     Active Substance: FAMOTIDINE
     Route: 065
     Dates: start: 20240328
  4. ADCAL [Concomitant]
     Dates: start: 20240328
  5. FEBUXOSTAT [Concomitant]
     Active Substance: FEBUXOSTAT
     Dosage: EACH MORNING
     Dates: start: 20240328

REACTIONS (2)
  - Tubulointerstitial nephritis [Unknown]
  - Renal injury [Recovered/Resolved with Sequelae]

NARRATIVE: CASE EVENT DATE: 20240522
